FAERS Safety Report 13462874 (Version 1)
Quarter: 2017Q2

REPORT INFORMATION
  Report Type: Spontaneous
  Country: US (occurrence: US)
  Receive Date: 20170420
  Receipt Date: 20170420
  Transmission Date: 20170830
  Serious: Yes (Disabling)
  Sender: FDA-Public Use
  Company Number: US-ASCEND THERAPEUTICS-1065586

PATIENT
  Age: 52 Year
  Sex: Female

DRUGS (4)
  1. ESTROGEL [Suspect]
     Active Substance: ESTRADIOL
     Indication: MENOPAUSAL SYMPTOMS
     Route: 062
     Dates: start: 20170309, end: 20170412
  2. TRAZODONE [Concomitant]
     Active Substance: TRAZODONE HYDROCHLORIDE
     Dates: start: 19990101
  3. XANAX [Concomitant]
     Active Substance: ALPRAZOLAM
  4. NORCO [Concomitant]
     Active Substance: ACETAMINOPHEN\HYDROCODONE BITARTRATE

REACTIONS (7)
  - Peripheral swelling [None]
  - Paraesthesia [None]
  - Pain in extremity [Recovering/Resolving]
  - Cough [Recovering/Resolving]
  - Dyspnoea [None]
  - Abasia [None]
  - Throat irritation [Recovering/Resolving]

NARRATIVE: CASE EVENT DATE: 20170316
